FAERS Safety Report 5378696-X (Version None)
Quarter: 2007Q3

REPORT INFORMATION
  Report Type: 
  Country: None (occurrence: None)
  Receive Date: 20070705
  Receipt Date: 20070625
  Transmission Date: 20080115
  Serious: Yes (Other)
  Sender: FDA-Public Use
  Company Number: A0653092A

PATIENT
  Age: 68 Year
  Sex: Female
  Weight: 84 kg

DRUGS (2)
  1. LAPATINIB [Suspect]
     Indication: BREAST CANCER METASTATIC
     Dosage: 1500MG PER DAY
     Route: 048
     Dates: start: 20060830
  2. TAXOL [Suspect]
     Indication: BREAST CANCER METASTATIC
     Dosage: 80MGM2 CYCLIC
     Route: 042
     Dates: start: 20060830

REACTIONS (2)
  - FATIGUE [None]
  - NEUTROPENIA [None]
